FAERS Safety Report 22362447 (Version 4)
Quarter: 2023Q2

REPORT INFORMATION
  Report Type: Spontaneous
  Country: US (occurrence: US)
  Receive Date: 20230524
  Receipt Date: 20230531
  Transmission Date: 20230721
  Serious: Yes (Other)
  Sender: FDA-Public Use
  Company Number: US-MLMSERVICE-20230515-4285591-1

PATIENT
  Age: 33 Year
  Sex: Male

DRUGS (15)
  1. METHYLPREDNISOLONE SODIUM SUCCINATE [Suspect]
     Active Substance: METHYLPREDNISOLONE SODIUM SUCCINATE
     Indication: Immunosuppression
     Dosage: SEVERAL COURSES OF PULSE STEROIDS
     Route: 042
  2. THYMOCYTE IMMUNE GLOBULIN NOS [Suspect]
     Active Substance: THYMOCYTE IMMUNE GLOBULIN NOS
     Indication: Immunosuppressant drug therapy
     Dosage: 4 MG/KG
  3. SIROLIMUS [Suspect]
     Active Substance: SIROLIMUS
     Indication: Immunosuppression
  4. PREDNISONE [Suspect]
     Active Substance: PREDNISONE
     Indication: Immunosuppressant drug therapy
     Dosage: UNK
  5. PREDNISONE [Suspect]
     Active Substance: PREDNISONE
     Dosage: INCREASED DOSE
  6. PREDNISONE [Suspect]
     Active Substance: PREDNISONE
     Dosage: 100 MG
  7. TACROLIMUS [Suspect]
     Active Substance: TACROLIMUS
     Indication: Immunosuppressant drug therapy
     Dosage: INCREASED DOSE
  8. TACROLIMUS [Suspect]
     Active Substance: TACROLIMUS
     Dosage: UNK
  9. BASILIXIMAB [Suspect]
     Active Substance: BASILIXIMAB
     Indication: Immunosuppressant drug therapy
     Dosage: UNK
  10. MYCOPHENOLIC ACID [Suspect]
     Active Substance: MYCOPHENOLIC ACID
     Indication: Immunosuppressant drug therapy
     Dosage: INCREASED DOSE
  11. MYCOPHENOLIC ACID [Suspect]
     Active Substance: MYCOPHENOLIC ACID
     Dosage: UNK
  12. MYCOPHENOLIC ACID [Suspect]
     Active Substance: MYCOPHENOLIC ACID
     Dosage: 1500 MG, 2X/DAY ;FREQ:12 D
  13. MILRINONE [Concomitant]
     Active Substance: MILRINONE
     Indication: Cardiomyopathy
     Dosage: UNK
  14. FLUCONAZOLE [Concomitant]
     Active Substance: FLUCONAZOLE
     Indication: Pneumonia cryptococcal
     Dosage: UNK
  15. FLUCONAZOLE [Concomitant]
     Active Substance: FLUCONAZOLE
     Indication: Pulmonary mass

REACTIONS (5)
  - Gastroenteritis Escherichia coli [Unknown]
  - Nocardiosis [Unknown]
  - Cerebral nocardiosis [Unknown]
  - Pulmonary nocardiosis [Unknown]
  - Gastroenteritis norovirus [Unknown]
